FAERS Safety Report 17423154 (Version 1)
Quarter: 2020Q1

REPORT INFORMATION
  Report Type: Spontaneous
  Country: US (occurrence: US)
  Receive Date: 20200131
  Receipt Date: 20200131
  Transmission Date: 20200409
  Serious: Yes (Hospitalization)
  Sender: FDA-Public Use
  Company Number: None

PATIENT
  Sex: Female

DRUGS (1)
  1. ENBREL [Suspect]
     Active Substance: ETANERCEPT
     Dosage: ?          OTHER FREQUENCY:EVERY7DAYS ;?
     Route: 058
     Dates: start: 20190718

REACTIONS (3)
  - Chest pain [None]
  - Aortic disorder [None]
  - Therapy cessation [None]
